FAERS Safety Report 5406704-6 (Version None)
Quarter: 2007Q3

REPORT INFORMATION
  Report Type: 
  Country: None (occurrence: None)
  Receive Date: 20070803
  Receipt Date: 20070803
  Transmission Date: 20080115
  Serious: Yes (Other)
  Sender: FDA-Public Use
  Company Number: None

PATIENT
  Age: 50 Year
  Sex: Male
  Weight: 50 kg

DRUGS (2)
  1. PRIMIDONE [Suspect]
     Indication: EPILEPSY
     Dosage: SEE NOTES
     Dates: start: 20070129, end: 20070403
  2. MYSOLINE [Concomitant]

REACTIONS (3)
  - CONVULSION [None]
  - GASTROOESOPHAGEAL REFLUX DISEASE [None]
  - NAUSEA [None]
